FAERS Safety Report 7504362-8 (Version None)
Quarter: 2011Q2

REPORT INFORMATION
  Report Type: 
  Country: None (occurrence: None)
  Receive Date: 20110525
  Receipt Date: 20110516
  Transmission Date: 20111010
  Serious: Yes (Other)
  Sender: FDA-Public Use
  Company Number: CHPA2011GB06951

PATIENT
  Sex: Female

DRUGS (1)
  1. NICOTINE [Suspect]
     Dosage: UNK, FOR 8 YEARS
     Route: 002

REACTIONS (8)
  - TOOTH DISORDER [None]
  - CONDITION AGGRAVATED [None]
  - NICOTINE DEPENDENCE [None]
  - SJOGREN'S SYNDROME [None]
  - DRY MOUTH [None]
  - GINGIVAL DISORDER [None]
  - INCORRECT DRUG ADMINISTRATION DURATION [None]
  - DRY EYE [None]
